FAERS Safety Report 6678195-9 (Version None)
Quarter: 2010Q2

REPORT INFORMATION
  Report Type: 
  Country: None (occurrence: None)
  Receive Date: 20100412
  Receipt Date: 20100329
  Transmission Date: 20101027
  Serious: Yes (Other)
  Sender: FDA-Public Use
  Company Number: GB-AMGEN-US403587

PATIENT
  Age: 35 Year
  Sex: Female

DRUGS (1)
  1. ENBREL [Suspect]
     Indication: PSORIASIS
     Dosage: UNKNOWN
     Route: 058

REACTIONS (4)
  - BONE DENSITY DECREASED [None]
  - GINGIVITIS [None]
  - SEPSIS [None]
  - TACHYPHYLAXIS [None]
